FAERS Safety Report 11725034 (Version 1)
Quarter: 2015Q4

REPORT INFORMATION
  Report Type: Spontaneous
  Country: US (occurrence: US)
  Receive Date: 20151111
  Receipt Date: 20151111
  Transmission Date: 20160304
  Serious: No
  Sender: FDA-Public Use
  Company Number: US-UCBSA-118452

PATIENT
  Sex: Male
  Weight: 66.22 kg

DRUGS (1)
  1. VIMPAT [Suspect]
     Active Substance: LACOSAMIDE
     Indication: SEIZURE
     Dosage: 100 MG/ 2 DAY
     Dates: start: 20140320, end: 2014

REACTIONS (4)
  - Anger [Unknown]
  - Mood altered [Recovered/Resolved]
  - Weight increased [Recovered/Resolved]
  - Thinking abnormal [Unknown]

NARRATIVE: CASE EVENT DATE: 2014
